FAERS Safety Report 4510054-X (Version None)
Quarter: 2004Q4

REPORT INFORMATION
  Report Type: 
  Country: None (occurrence: None)
  Receive Date: 20041124
  Receipt Date: 20041119
  Transmission Date: 20050328
  Serious: Yes (Other)
  Sender: FDA-Public Use
  Company Number: PHBS2004BR15625

PATIENT

DRUGS (1)
  1. VOLTAREN [Suspect]

REACTIONS (1)
  - INJECTION SITE NECROSIS [None]
